FAERS Safety Report 13455686 (Version 7)
Quarter: 2020Q3

REPORT INFORMATION
  Report Type: Report from Study
  Country: US (occurrence: US)
  Receive Date: 20170418
  Receipt Date: 20200821
  Transmission Date: 20201102
  Serious: Yes (Hospitalization)
  Sender: FDA-Public Use
  Company Number: US-ACTELION-A-US2017-152586

PATIENT
  Sex: Female
  Weight: 65.76 kg

DRUGS (5)
  1. XARELTO [Concomitant]
     Active Substance: RIVAROXABAN
  2. OPSUMIT [Suspect]
     Active Substance: MACITENTAN
     Indication: PULMONARY ARTERIAL HYPERTENSION
     Dosage: 10 MG, QD
     Route: 048
  3. COUMADIN [Concomitant]
     Active Substance: WARFARIN SODIUM
  4. OPSUMIT [Suspect]
     Active Substance: MACITENTAN
     Dosage: 10 MG, QD
     Route: 048
  5. TYVASO [Concomitant]
     Active Substance: TREPROSTINIL

REACTIONS (14)
  - Hypotension [Unknown]
  - Treatment noncompliance [Unknown]
  - Device dislocation [Unknown]
  - Pharyngeal swelling [Unknown]
  - Cough [Unknown]
  - Chest pain [Unknown]
  - Bronchitis [Unknown]
  - Dyspnoea [Unknown]
  - Malaise [Unknown]
  - Anxiety [Unknown]
  - Unevaluable event [Unknown]
  - Product dose omission issue [Unknown]
  - Pneumonia [Unknown]
  - Vaginal haemorrhage [Unknown]
